FAERS Safety Report 25009464 (Version 3)
Quarter: 2025Q1

REPORT INFORMATION
  Report Type: Report from Study
  Country: FR (occurrence: FR)
  Receive Date: 20250225
  Receipt Date: 20250311
  Transmission Date: 20250409
  Serious: Yes (Life-Threatening)
  Sender: ASTELLAS
  Company Number: FR-AFSSAPS-PO2025000147

PATIENT
  Age: 76 Year
  Sex: Male
  Weight: 64 kg

DRUGS (2)
  1. ENFORTUMAB VEDOTIN-EJFV [Suspect]
     Active Substance: ENFORTUMAB VEDOTIN-EJFV
     Indication: Transitional cell carcinoma
     Dosage: 1.25 MG/KG, I.E. 84 MG ON D1, D8, D15 OF A 28-DAY CYCLE
     Route: 042
     Dates: start: 20241104, end: 20250106
  2. KEYTRUDA [Suspect]
     Active Substance: PEMBROLIZUMAB
     Indication: Transitional cell carcinoma
     Route: 042
     Dates: start: 20241104, end: 20250106

REACTIONS (1)
  - Lung disorder [Recovering/Resolving]

NARRATIVE: CASE EVENT DATE: 20250106
